FAERS Safety Report 20751218 (Version 1)
Quarter: 2022Q2

REPORT INFORMATION
  Report Type: Spontaneous
  Country: LT (occurrence: None)
  Receive Date: 20220426
  Receipt Date: 20220426
  Transmission Date: 20220721
  Serious: Yes (Hospitalization, Other)
  Sender: FDA-Public Use
  Company Number: LT-009507513-2204LTU005150

PATIENT
  Age: 65 Year
  Sex: Male

DRUGS (5)
  1. CARBOPLATIN [Suspect]
     Active Substance: CARBOPLATIN
     Indication: Lung adenocarcinoma stage IV
     Dosage: 6 ADMINISTRATIONS WITH PEMBROLIZUMAB AND PEMETREXED
     Dates: start: 20210624, end: 20211112
  2. PEMBROLIZUMAB [Suspect]
     Active Substance: PEMBROLIZUMAB
     Indication: Lung adenocarcinoma stage IV
     Dosage: 3 ADMINISTRATIONS WITH PEMETREXED
     Dates: start: 20211202, end: 20220215
  3. PEMBROLIZUMAB [Suspect]
     Active Substance: PEMBROLIZUMAB
     Indication: Product used for unknown indication
     Dosage: 6 ADMINISTRATIONS WITH PEMETREXED AND CARBOPLATIN
     Dates: start: 20210624, end: 20211112
  4. PEMETREXED [Suspect]
     Active Substance: PEMETREXED
     Indication: Lung adenocarcinoma stage IV
     Dosage: 3 ADMINISTRATIONS WITH PEMBROLIZUMAB
     Dates: start: 20211202, end: 20220215
  5. PEMETREXED [Suspect]
     Active Substance: PEMETREXED
     Indication: Product used for unknown indication
     Dosage: 6 ADMINISTRATIONS WITH PEMBROLIZUMAB AND CARBOPLATIN
     Dates: start: 20210624, end: 20211112

REACTIONS (3)
  - Product prescribing issue [Unknown]
  - Malignant neoplasm progression [Unknown]
  - Pneumonia [Unknown]

NARRATIVE: CASE EVENT DATE: 20210101
